FAERS Safety Report 6660539-5 (Version None)
Quarter: 2010Q1

REPORT INFORMATION
  Report Type: 
  Country: None (occurrence: None)
  Receive Date: 20100331
  Receipt Date: 20100325
  Transmission Date: 20100710
  Serious: Yes (Other)
  Sender: FDA-Public Use
  Company Number: PHHY2010JP10863

PATIENT
  Sex: Male
  Weight: 55 kg

DRUGS (8)
  1. ZOMETA [Suspect]
     Indication: METASTASES TO BONE
     Dosage: 4 MG EVERY FOUR WEEKS
     Route: 041
     Dates: start: 20080212, end: 20091210
  2. TAXOTERE [Concomitant]
     Indication: METASTASES TO BONE
     Dosage: EVERY 3 WEEKS
     Route: 041
     Dates: start: 20081106
  3. TAXOTERE [Concomitant]
     Dosage: EVERY 4 WEEKS
     Route: 041
  4. ZOLADEX [Concomitant]
     Indication: METASTASES TO BONE
     Dosage: UNK
     Route: 058
     Dates: start: 20060523
  5. CASODEX [Concomitant]
     Route: 048
  6. DECADRON [Concomitant]
     Indication: METASTASES TO BONE
     Dosage: 1 MG
     Route: 048
     Dates: start: 20080703
  7. DECADRON [Concomitant]
     Dosage: 0.5 MG
     Route: 048
  8. DOCETAXEL HYDRATE [Concomitant]
     Route: 042

REACTIONS (10)
  - ALANINE AMINOTRANSFERASE INCREASED [None]
  - BLOOD ALKALINE PHOSPHATASE INCREASED [None]
  - BONE LESION [None]
  - HYPERTONIC BLADDER [None]
  - NEUROPATHY PERIPHERAL [None]
  - OSTEOMYELITIS [None]
  - OSTEONECROSIS [None]
  - SEQUESTRECTOMY [None]
  - WHITE BLOOD CELL COUNT DECREASED [None]
  - WHITE BLOOD CELL COUNT INCREASED [None]
